FAERS Safety Report 13398552 (Version 1)
Quarter: 2017Q2

REPORT INFORMATION
  Report Type: Spontaneous
  Country: US (occurrence: US)
  Receive Date: 20170403
  Receipt Date: 20170403
  Transmission Date: 20170830
  Serious: No
  Sender: FDA-Public Use
  Company Number: GXBR2017US000819

PATIENT
  Age: 62 Year
  Sex: Female

DRUGS (1)
  1. BIMATOPROST. [Suspect]
     Active Substance: BIMATOPROST
     Indication: EYELASH THICKENING
     Dosage: UNK DF, QD
     Route: 065
     Dates: start: 20170117, end: 20170213

REACTIONS (1)
  - Madarosis [Not Recovered/Not Resolved]
